FAERS Safety Report 20319597 (Version 1)
Quarter: 2022Q1

REPORT INFORMATION
  Report Type: Spontaneous
  Country: US (occurrence: US)
  Receive Date: 20220110
  Receipt Date: 20220110
  Transmission Date: 20220423
  Serious: Yes (Other)
  Sender: FDA-Public Use
  Company Number: US-BEH-2022140284

PATIENT
  Age: 67 Year
  Sex: Female
  Weight: 49.5 kg

DRUGS (1)
  1. HIZENTRA [Suspect]
     Active Substance: HUMAN IMMUNOGLOBULIN G
     Indication: Immunodeficiency common variable
     Dosage: 20 GRAM, QOW
     Route: 058
     Dates: start: 2020

REACTIONS (4)
  - Infusion site pruritus [Recovered/Resolved]
  - Infusion site erythema [Recovered/Resolved]
  - Infusion site warmth [Recovered/Resolved]
  - Nausea [Recovered/Resolved]

NARRATIVE: CASE EVENT DATE: 20210101
